FAERS Safety Report 20661574 (Version 5)
Quarter: 2022Q3

REPORT INFORMATION
  Report Type: Spontaneous
  Country: JP (occurrence: JP)
  Receive Date: 20220401
  Receipt Date: 20220808
  Transmission Date: 20221026
  Serious: No
  Sender: FDA-Public Use
  Company Number: JP-GLAXOSMITHKLINE-JP2022JPN055307

PATIENT

DRUGS (8)
  1. SOTROVIMAB [Suspect]
     Active Substance: SOTROVIMAB
     Indication: COVID-19
     Dosage: 500 MG/DAY
     Route: 042
     Dates: start: 20220325, end: 20220325
  2. CALONAL [Suspect]
     Active Substance: ACETAMINOPHEN
     Indication: Pain
     Dosage: 400 MG/DOSE, AT THE TIME OF PAIN OR/AND PYREXIA
     Route: 048
     Dates: start: 20211108
  3. CALONAL [Suspect]
     Active Substance: ACETAMINOPHEN
     Indication: Pyrexia
  4. CEFCAPENE PIVOXIL HYDROCHLORIDE [Suspect]
     Active Substance: CEFCAPENE PIVOXIL HYDROCHLORIDE
     Indication: Cystitis
     Dosage: 300 MG/DAY
     Route: 048
     Dates: start: 20220128, end: 20220203
  5. CLARITHROMYCIN [Suspect]
     Active Substance: CLARITHROMYCIN
     Indication: Cystitis
     Dosage: 400 MG/DAY
     Route: 048
     Dates: start: 20220217, end: 20220223
  6. FERROUS SULFATE [Suspect]
     Active Substance: FERROUS SULFATE
     Indication: Iron deficiency anaemia
     Dosage: 105 MG/DAY
     Route: 048
     Dates: start: 20220325, end: 20220331
  7. DOMIPHEN BROMIDE [Suspect]
     Active Substance: DOMIPHEN BROMIDE
     Indication: Pharyngitis
     Dosage: 0.5 MG/DOSE
     Dates: start: 20220325
  8. CARBOCYSTEINE [Suspect]
     Active Substance: CARBOCYSTEINE
     Indication: Productive cough
     Dosage: 1500 MG/DAY
     Route: 048
     Dates: start: 20220325

REACTIONS (2)
  - Caesarean section [Unknown]
  - Exposure during pregnancy [Unknown]

NARRATIVE: CASE EVENT DATE: 20220408
